FAERS Safety Report 8766912 (Version 1)
Quarter: 2012Q4

REPORT INFORMATION
  Report Type: 
  Country: JP (occurrence: JP)
  Receive Date: 20120906
  Receipt Date: 20120906
  Transmission Date: 20130627
  Serious: Yes (Other)
  Sender: FDA-Public Use
  Company Number: JP-PFIZER INC-2012214157

PATIENT
  Age: 36 Year
  Sex: Female
  Weight: 55 kg

DRUGS (13)
  1. LIPITOR [Suspect]
     Indication: HYPERLIPIDAEMIA
     Dosage: 10 mg, daily
     Route: 048
     Dates: start: 20081212, end: 20091007
  2. PROGRAF [Suspect]
     Indication: LUPUS NEPHRITIS
     Dosage: 3 mg, daily
     Route: 048
     Dates: start: 20090612, end: 20101116
  3. PROGRAF [Suspect]
     Dosage: 1.5 mg,daily
     Route: 048
     Dates: start: 20101117
  4. PREDNISOLONE [Suspect]
     Indication: LUPUS NEPHRITIS
     Dosage: 17.5 mg, daily
     Route: 048
     Dates: end: 20090612
  5. PREDNISOLONE [Suspect]
     Dosage: 15 mg, daily
     Route: 048
     Dates: start: 20090613, end: 20090812
  6. PREDNISOLONE [Suspect]
     Dosage: 13 mg, daily
     Route: 048
     Dates: start: 20090813, end: 20091007
  7. PREDNISOLONE [Suspect]
     Dosage: 11 mg, daily
     Route: 048
     Dates: start: 20091008, end: 20100216
  8. PREDNISOLONE [Suspect]
     Dosage: 10 mg, daily
     Route: 048
     Dates: start: 20100217, end: 20110126
  9. PREDNISOLONE [Suspect]
     Dosage: 9 mg, daily
     Route: 048
     Dates: start: 20110127, end: 20111102
  10. PREDNISOLONE [Suspect]
     Dosage: 8 mg, daily
     Route: 048
     Dates: start: 20111103
  11. NU LOTAN [Concomitant]
     Indication: LUPUS NEPHRITIS
     Dosage: UNK
  12. PARIET [Concomitant]
     Dosage: UNK
  13. ROCALTROL [Concomitant]
     Dosage: UNK

REACTIONS (1)
  - Diabetes mellitus [Recovered/Resolved]
